FAERS Safety Report 19117878 (Version 1)
Quarter: 2021Q2

REPORT INFORMATION
  Report Type: Report from Study
  Country: JP (occurrence: JP)
  Receive Date: 20210409
  Receipt Date: 20210409
  Transmission Date: 20210717
  Serious: Yes (Hospitalization, Other)
  Sender: FDA-Public Use
  Company Number: JP-BAUSCH-BL-2021-012451

PATIENT
  Age: 66 Year
  Sex: Male

DRUGS (7)
  1. LUMICEF [Suspect]
     Active Substance: BRODALUMAB
     Indication: PSORIASIS
     Route: 058
     Dates: start: 20181204, end: 20181218
  2. LUMICEF [Suspect]
     Active Substance: BRODALUMAB
     Dosage: DURATION: 3 MONTHS 17 DAYS
     Route: 058
     Dates: start: 20190226, end: 20190611
  3. LUMICEF [Suspect]
     Active Substance: BRODALUMAB
     Dosage: DURATION: 3 MONTHS 21 DAYS
     Route: 058
     Dates: start: 20190709, end: 20191029
  4. LUMICEF [Suspect]
     Active Substance: BRODALUMAB
     Route: 058
     Dates: start: 20191122, end: 20191122
  5. LUMICEF [Suspect]
     Active Substance: BRODALUMAB
     Route: 058
     Dates: start: 20181229, end: 20190111
  6. LUMICEF [Suspect]
     Active Substance: BRODALUMAB
     Route: 058
     Dates: start: 20190122, end: 20190205
  7. LUMICEF [Suspect]
     Active Substance: BRODALUMAB
     Dosage: DURATION: 3 MONTHS 29 DAYS
     Route: 058
     Dates: start: 20191224, end: 20200421

REACTIONS (1)
  - Hepatocellular carcinoma [Recovering/Resolving]

NARRATIVE: CASE EVENT DATE: 20200427
